FAERS Safety Report 9558353 (Version 2)
Quarter: 2014Q1

REPORT INFORMATION
  Report Type: Report from Study
  Country: AR (occurrence: AR)
  Receive Date: 20130926
  Receipt Date: 20140219
  Transmission Date: 20141002
  Serious: Yes (Other)
  Sender: FDA-Public Use
  Company Number: PHHY2013AR107437

PATIENT
  Sex: Female

DRUGS (4)
  1. ACLASTA [Suspect]
     Indication: OSTEOPOROSIS
     Dosage: 1 AMPOULE ANNUALLY
     Route: 042
  2. EXELON PATCH [Suspect]
     Indication: AMNESIA
     Dosage: 9.5 MG, (1 PATCH 10CM2) DAILY
     Route: 062
  3. EXELON PATCH [Suspect]
     Indication: NERVOUSNESS
  4. EXELON PATCH [Suspect]
     Indication: TREMOR

REACTIONS (3)
  - Retinal artery embolism [Recovering/Resolving]
  - Retinal vascular thrombosis [Unknown]
  - Wrong technique in drug usage process [Not Recovered/Not Resolved]
